FAERS Safety Report 4437081-5 (Version None)
Quarter: 2004Q3

REPORT INFORMATION
  Report Type: 
  Country: None (occurrence: None)
  Receive Date: 20040830
  Receipt Date: 20040824
  Transmission Date: 20050211
  Serious: Yes (Life-Threatening, Hospitalization)
  Sender: FDA-Public Use
  Company Number: PHBS2004NL11300

PATIENT
  Age: 66 Year
  Sex: Female

DRUGS (1)
  1. TEGRETOL [Suspect]
     Indication: TRIGEMINAL NEURALGIA
     Route: 048

REACTIONS (5)
  - MALAISE [None]
  - PRURITUS [None]
  - PYREXIA [None]
  - RASH [None]
  - URINARY TRACT INFECTION [None]
